FAERS Safety Report 4728390-0 (Version None)
Quarter: 2005Q3

REPORT INFORMATION
  Report Type: 
  Country: None (occurrence: None)
  Receive Date: 20050729
  Receipt Date: 20050531
  Transmission Date: 20060218
  Serious: No
  Sender: FDA-Public Use
  Company Number: US-GLAXOSMITHKLINE-A0560598A

PATIENT
  Age: 8 Year
  Sex: Male

DRUGS (3)
  1. ZANTAC [Suspect]
     Indication: GASTROINTESTINAL DISORDER
     Dosage: 75MG TWICE PER DAY
     Route: 048
     Dates: start: 20050526
  2. ZANTAC [Suspect]
     Dosage: 75MG TWICE PER DAY
     Route: 048
     Dates: start: 20050521, end: 20050521
  3. NO CONCURRENT MEDICATION [Concomitant]

REACTIONS (2)
  - DISTURBANCE IN ATTENTION [None]
  - VOMITING [None]
